FAERS Safety Report 20247765 (Version 1)
Quarter: 2021Q4

REPORT INFORMATION
  Report Type: Spontaneous
  Country: US (occurrence: None)
  Receive Date: 20211228
  Receipt Date: 20211228
  Transmission Date: 20220303
  Serious: No
  Sender: FDA-Public Use
  Company Number: None

PATIENT
  Age: 65 Year
  Sex: Male

DRUGS (1)
  1. ZYTIGA [Suspect]
     Active Substance: ABIRATERONE ACETATE
     Indication: Prostate cancer
     Dosage: FREQUENCY : DAILY;?
     Route: 048
     Dates: start: 202006

REACTIONS (6)
  - Wound [None]
  - Peripheral swelling [None]
  - Wound drainage [None]
  - Skin discolouration [None]
  - Blood iron decreased [None]
  - Blood potassium decreased [None]

NARRATIVE: CASE EVENT DATE: 20211116
